FAERS Safety Report 10067519 (Version 3)
Quarter: 2014Q2

REPORT INFORMATION
  Report Type: Spontaneous
  Country: JP (occurrence: None)
  Receive Date: 20140407
  Receipt Date: 20140527
  Transmission Date: 20141212
  Serious: Yes (Hospitalization)
  Sender: FDA-Public Use
  Company Number: AE-SPE-2014-011

PATIENT
  Age: 37 Year
  Sex: Female

DRUGS (2)
  1. MEIACT MS [Suspect]
     Indication: UPPER RESPIRATORY TRACT INFECTION
     Dosage: 100 MG, PO, ONE DOSE
     Route: 048
     Dates: start: 20140327, end: 20140327
  2. LOXONIN [Suspect]
     Indication: UPPER RESPIRATORY TRACT INFECTION
     Dosage: 60 MG, PO, ONE DOSE
     Route: 048
     Dates: start: 20140327, end: 20140327

REACTIONS (5)
  - Drug eruption [None]
  - Localised oedema [None]
  - Oedema peripheral [None]
  - Erythema [None]
  - Face oedema [None]
